FAERS Safety Report 9772063 (Version 2)
Quarter: 2014Q1

REPORT INFORMATION
  Report Type: Spontaneous
  Country: US (occurrence: US)
  Receive Date: 20131219
  Receipt Date: 20140113
  Transmission Date: 20141002
  Serious: Yes (Death, Hospitalization)
  Sender: FDA-Public Use
  Company Number: US-AMGEN-USASP2013088379

PATIENT
  Age: 90 Year
  Sex: Female

DRUGS (1)
  1. PROLIA [Suspect]
     Indication: OSTEOPOROSIS POSTMENOPAUSAL
     Dosage: 60 MG, UNK
     Route: 065

REACTIONS (4)
  - Respiratory failure [Fatal]
  - Coronary artery disease [Fatal]
  - Cardiac failure congestive [Fatal]
  - Chest pain [Unknown]
